FAERS Safety Report 14873426 (Version 1)
Quarter: 2018Q2

REPORT INFORMATION
  Report Type: Spontaneous
  Country: FR (occurrence: FR)
  Receive Date: 20180510
  Receipt Date: 20180510
  Transmission Date: 20180711
  Serious: Yes (Other)
  Sender: FDA-Public Use
  Company Number: FR-MERCK KGAA-2047516

PATIENT
  Age: 33 Year
  Sex: Male
  Weight: 64 kg

DRUGS (1)
  1. NOVOTHYROX [Suspect]
     Active Substance: LEVOTHYROXINE SODIUM
     Indication: CONGENITAL HYPOTHYROIDISM
     Route: 048

REACTIONS (21)
  - Loss of consciousness [None]
  - Disturbance in attention [None]
  - Mood swings [None]
  - Hypokinesia [None]
  - Glycosylated haemoglobin increased [Recovered/Resolved]
  - Asthenia [None]
  - Muscle spasms [None]
  - Nervousness [None]
  - Hypoglycaemia [Recovered/Resolved]
  - Myalgia [None]
  - Anxiety [None]
  - Dyspnoea [None]
  - Fatigue [None]
  - Thyroxine increased [None]
  - Diplopia [None]
  - Tachycardia [None]
  - Amnesia [None]
  - Tri-iodothyronine decreased [None]
  - Impaired quality of life [None]
  - Stress [None]
  - Dry mouth [None]

NARRATIVE: CASE EVENT DATE: 201705
